FAERS Safety Report 9932190 (Version 1)
Quarter: 2014Q1

REPORT INFORMATION
  Report Type: Spontaneous
  Country: US (occurrence: US)
  Receive Date: 20140228
  Receipt Date: 20140228
  Transmission Date: 20141002
  Serious: No
  Sender: FDA-Public Use
  Company Number: US-ABBVIE-13P-163-1108340-00

PATIENT
  Age: 73 Year
  Sex: Male
  Weight: 81.72 kg

DRUGS (4)
  1. ANDROGEL [Suspect]
     Indication: BLOOD TESTOSTERONE DECREASED
     Dates: start: 201304
  2. COUMADIN [Concomitant]
     Indication: ANTICOAGULANT THERAPY
  3. OMEPRAZOLE [Concomitant]
     Indication: DYSPEPSIA
  4. EYE DROPS [Concomitant]
     Indication: PRODUCT USED FOR UNKNOWN INDICATION

REACTIONS (2)
  - Drug dose omission [Recovered/Resolved]
  - Drug ineffective [Not Recovered/Not Resolved]
